FAERS Safety Report 4386302-6 (Version None)
Quarter: 2004Q2

REPORT INFORMATION
  Report Type: 
  Country: None (occurrence: None)
  Receive Date: 20040623
  Receipt Date: 20040614
  Transmission Date: 20050107
  Serious: Yes (Congenital Anomaly, Other)
  Sender: FDA-Public Use
  Company Number: 2004-06-0876

PATIENT
  Sex: 0

DRUGS (1)
  1. RIBAVIRIN [Suspect]
     Dosage: ORAL
     Route: 048

REACTIONS (2)
  - GROWTH RETARDATION [None]
  - TRANSMISSION OF DRUG VIA SEMEN [None]
